FAERS Safety Report 13185011 (Version 2)
Quarter: 2017Q1

REPORT INFORMATION
  Report Type: Spontaneous
  Country: US (occurrence: US)
  Receive Date: 20170203
  Receipt Date: 20170207
  Transmission Date: 20170428
  Serious: Yes (Hospitalization, Other)
  Sender: FDA-Public Use
  Company Number: US-JNJFOC-20170124389

PATIENT

DRUGS (6)
  1. METHOTREXATE. [Suspect]
     Active Substance: METHOTREXATE
     Indication: RHEUMATOID ARTHRITIS
     Route: 065
  2. AZATHIOPRIN [Suspect]
     Active Substance: AZATHIOPRINE
     Indication: RHEUMATOID ARTHRITIS
     Route: 065
  3. PREDNISONE. [Suspect]
     Active Substance: PREDNISONE
     Indication: RHEUMATOID ARTHRITIS
     Route: 065
  4. LEFLUNOMIDE. [Suspect]
     Active Substance: LEFLUNOMIDE
     Indication: RHEUMATOID ARTHRITIS
     Route: 065
  5. INFLIXIMAB, RECOMBINANT [Suspect]
     Active Substance: INFLIXIMAB
     Indication: RHEUMATOID ARTHRITIS
     Route: 042
  6. ETANERCEPT [Suspect]
     Active Substance: ETANERCEPT
     Indication: RHEUMATOID ARTHRITIS
     Route: 065

REACTIONS (14)
  - Cellulitis [Unknown]
  - Pneumonia [Unknown]
  - Oedema peripheral [Unknown]
  - Arthralgia [Unknown]
  - Drug ineffective [Unknown]
  - Rash [Unknown]
  - Nausea [Unknown]
  - Thrombocytopenia [Unknown]
  - Localised infection [Unknown]
  - Infection [Unknown]
  - Arthritis bacterial [Unknown]
  - Acute respiratory distress syndrome [Unknown]
  - Lung neoplasm malignant [Unknown]
  - Infusion related reaction [Unknown]
